FAERS Safety Report 6064717-8 (Version None)
Quarter: 2009Q1

REPORT INFORMATION
  Report Type: 
  Country: None (occurrence: None)
  Receive Date: 20090204
  Receipt Date: 20080730
  Transmission Date: 20090719
  Serious: No
  Sender: FDA-Public Use
  Company Number: A0740274A

PATIENT
  Age: 70 Year
  Sex: Male

DRUGS (7)
  1. ARIXTRA [Suspect]
     Indication: ANTICOAGULANT THERAPY
     Dosage: 2.5MG PER DAY
     Route: 058
     Dates: start: 20080623
  2. LISINOPRIL [Concomitant]
  3. PREVACID [Concomitant]
  4. GLIPIZIDE [Concomitant]
  5. TERAZOSIN HCL [Concomitant]
  6. HYDROCHLOROTHIAZIDE [Concomitant]
  7. UNKNOWN MEDICATION [Concomitant]

REACTIONS (2)
  - FLUID RETENTION [None]
  - HYPERTENSION [None]
